FAERS Safety Report 12253120 (Version 1)
Quarter: 2016Q2

REPORT INFORMATION
  Report Type: Spontaneous
  Country: US (occurrence: None)
  Receive Date: 20160408
  Receipt Date: 20160408
  Transmission Date: 20160815
  Serious: Yes (Disabling, Other)
  Sender: FDA-Public Use
  Company Number: None

PATIENT
  Age: 54 Year
  Sex: Male
  Weight: 81.65 kg

DRUGS (1)
  1. CABERGOLINE 0.5MG PARR [Suspect]
     Active Substance: CABERGOLINE
     Indication: PITUITARY TUMOUR BENIGN
     Dates: start: 20120420

REACTIONS (3)
  - Product substitution issue [None]
  - Laboratory test abnormal [None]
  - Product label confusion [None]

NARRATIVE: CASE EVENT DATE: 201410
